FAERS Safety Report 23751684 (Version 2)
Quarter: 2024Q2

REPORT INFORMATION
  Report Type: Spontaneous
  Country: US (occurrence: US)
  Receive Date: 20240417
  Receipt Date: 20240420
  Transmission Date: 20240716
  Serious: Yes (Other)
  Sender: FDA-Public Use
  Company Number: US-ABBVIE-5719765

PATIENT
  Sex: Male

DRUGS (6)
  1. DIVALPROEX SODIUM [Suspect]
     Active Substance: DIVALPROEX SODIUM
     Indication: Bipolar I disorder
     Dosage: UNKNOWN
     Route: 048
  2. DIVALPROEX SODIUM [Suspect]
     Active Substance: DIVALPROEX SODIUM
     Indication: Bipolar I disorder
     Route: 048
     Dates: start: 202309, end: 202309
  3. DIVALPROEX SODIUM [Suspect]
     Active Substance: DIVALPROEX SODIUM
     Indication: Bipolar I disorder
     Route: 048
  4. DIVALPROEX SODIUM [Suspect]
     Active Substance: DIVALPROEX SODIUM
     Indication: Bipolar I disorder
     Dosage: UNKNOWN
     Route: 048
  5. RISPERIDONE [Concomitant]
     Active Substance: RISPERIDONE
     Indication: Product used for unknown indication
  6. HALOPERIDOL [Concomitant]
     Active Substance: HALOPERIDOL
     Indication: Product used for unknown indication

REACTIONS (16)
  - Polycythaemia vera [Recovered/Resolved]
  - Dyspepsia [Recovered/Resolved]
  - Feeling cold [Unknown]
  - Weight decreased [Unknown]
  - Feeling hot [Unknown]
  - Bipolar I disorder [Unknown]
  - Schizophrenia [Unknown]
  - Spleen disorder [Unknown]
  - Illness [Unknown]
  - Product complaint [Unknown]
  - Haemoglobin abnormal [Unknown]
  - Respiratory disorder [Recovered/Resolved]
  - Haemoglobin increased [Recovering/Resolving]
  - Abdominal pain upper [Recovered/Resolved]
  - Cold sweat [Unknown]
  - Heart rate abnormal [Recovered/Resolved]
